FAERS Safety Report 8450340-4 (Version None)
Quarter: 2012Q2

REPORT INFORMATION
  Report Type: 
  Country: None (occurrence: None)
  Receive Date: 20120620
  Receipt Date: 20120614
  Transmission Date: 20120825
  Serious: No
  Sender: FDA-Public Use
  Company Number: PHHY2011NL56492

PATIENT
  Sex: Female

DRUGS (2)
  1. ZOLEDRONOC ACID [Suspect]
     Dosage: 5 MG/100ML ONCE PER 364 DAYS
     Route: 042
     Dates: start: 20110620, end: 20110620
  2. ZOLEDRONOC ACID [Suspect]
     Dosage: 5 MG/100ML
     Route: 042
     Dates: start: 20100608

REACTIONS (3)
  - MALAISE [None]
  - DIZZINESS [None]
  - RESPIRATORY TRACT INFECTION [None]
